FAERS Safety Report 15311274 (Version 3)
Quarter: 2018Q4

REPORT INFORMATION
  Report Type: Spontaneous
  Country: US (occurrence: US)
  Receive Date: 20180823
  Receipt Date: 20181206
  Transmission Date: 20190204
  Serious: Yes (Other)
  Sender: FDA-Public Use
  Company Number: US-PFIZER INC-2018337788

PATIENT
  Age: 66 Year
  Sex: Female
  Weight: 71 kg

DRUGS (10)
  1. FOSAMAX [Concomitant]
     Active Substance: ALENDRONATE SODIUM
     Dosage: 70 MG, WEEKLY(TAKE 1 TABLET EVERY WEEK IN THE MORNING)
  2. PREDNISONE. [Concomitant]
     Active Substance: PREDNISONE
     Dosage: 10 MG, 1X/DAY
     Dates: start: 2012
  3. XELJANZ [Suspect]
     Active Substance: TOFACITINIB CITRATE
     Indication: RHEUMATOID ARTHRITIS
     Dosage: 5 MG, 2X/DAY
     Route: 048
     Dates: start: 20180502, end: 20180708
  4. SYNTHROID [Concomitant]
     Active Substance: LEVOTHYROXINE SODIUM
     Dosage: 112 UG, 1X/DAY
     Route: 048
  5. FLONASE [Concomitant]
     Active Substance: FLUTICASONE PROPIONATE
     Dosage: UNK UNK, 1X/DAY (USE 2 SPRAYS IN EACH NOSTRIL ONCE DAILY)
     Route: 045
  6. PREDNISONE. [Concomitant]
     Active Substance: PREDNISONE
     Dosage: 40 MG, DAILY
     Dates: start: 201611, end: 201701
  7. PREDNISONE. [Concomitant]
     Active Substance: PREDNISONE
     Dosage: UNK
     Dates: end: 20181130
  8. EFUDEX [Concomitant]
     Active Substance: FLUOROURACIL
     Dosage: UNK UNK, 2X/DAY (TO FOREARMS AND BACKS OF HANDS FOR 2-4 WEEKS)
     Route: 061
  9. XELJANZ [Suspect]
     Active Substance: TOFACITINIB CITRATE
     Indication: ARTHRITIS
  10. KENALOG [Concomitant]
     Active Substance: TRIAMCINOLONE ACETONIDE
     Dosage: UNK UNK, AS NEEDED (APPLY TO AFFECTED AREA ON HANDS TWICE DAILY AS NEEDED. USE 2 WEEKS ON 1WEEK OFF)
     Route: 061

REACTIONS (6)
  - Deafness [Recovering/Resolving]
  - Condition aggravated [Unknown]
  - Labyrinthitis [Recovering/Resolving]
  - Drug effect incomplete [Unknown]
  - Upper respiratory tract infection [Not Recovered/Not Resolved]
  - Musculoskeletal stiffness [Unknown]

NARRATIVE: CASE EVENT DATE: 20180706
